FAERS Safety Report 10637922 (Version 3)
Quarter: 2015Q1

REPORT INFORMATION
  Report Type: Spontaneous
  Country: US (occurrence: US)
  Receive Date: 20141208
  Receipt Date: 20150114
  Transmission Date: 20150720
  Serious: Yes (Death)
  Sender: FDA-Public Use
  Company Number: US-PFIZER INC-2014292415

PATIENT
  Sex: Male

DRUGS (9)
  1. CALCIUM + VIT D [Concomitant]
     Active Substance: CALCIUM\VITAMIN D
     Dosage: UNK
  2. OXYCODONE [Concomitant]
     Active Substance: OXYCODONE
     Dosage: UNK
  3. SIMVASTATIN. [Concomitant]
     Active Substance: SIMVASTATIN
     Dosage: UNK
  4. CARVIDIL [Concomitant]
     Dosage: UNK
  5. XGEVA [Concomitant]
     Active Substance: DENOSUMAB
     Dosage: UNK
  6. SUTENT [Suspect]
     Active Substance: SUNITINIB MALATE
     Indication: PHAEOCHROMOCYTOMA
     Dosage: 50 MG, DAILY
     Dates: start: 20141021
  7. LANTUS [Concomitant]
     Active Substance: INSULIN GLARGINE
     Dosage: UNK
  8. ONDANSETRON [Concomitant]
     Active Substance: ONDANSETRON
     Dosage: UNK
  9. DIGOXIN. [Concomitant]
     Active Substance: DIGOXIN
     Dosage: UNK

REACTIONS (3)
  - Disease progression [Fatal]
  - Phaeochromocytoma [Fatal]
  - Product use issue [Unknown]

NARRATIVE: CASE EVENT DATE: 20141021
